FAERS Safety Report 5064539-0 (Version None)
Quarter: 2006Q3

REPORT INFORMATION
  Report Type: 
  Country: None (occurrence: None)
  Receive Date: 20060728
  Receipt Date: 20060705
  Transmission Date: 20061208
  Serious: Yes (Hospitalization)
  Sender: FDA-Public Use
  Company Number: US-ABBOTT-06P-163-0338023-00

PATIENT
  Sex: Male
  Weight: 104 kg

DRUGS (8)
  1. DEPAKOTE [Suspect]
     Indication: SUICIDE ATTEMPT
     Dates: start: 20060611, end: 20060611
  2. DEPAKOTE [Suspect]
     Indication: BIPOLAR DISORDER
     Route: 048
     Dates: start: 20051101, end: 20060611
  3. OLANZAPINE [Suspect]
     Indication: SUICIDE ATTEMPT
     Route: 048
     Dates: start: 20060611, end: 20060611
  4. OLANZAPINE [Suspect]
     Indication: BIPOLAR DISORDER
     Route: 048
     Dates: end: 20060611
  5. CLONAZEPAM [Suspect]
     Indication: SUICIDE ATTEMPT
     Route: 048
     Dates: start: 20060611, end: 20060611
  6. CLONAZEPAM [Suspect]
     Indication: BIPOLAR DISORDER
     Route: 048
     Dates: end: 20060611
  7. CYCLOBENZAPRINE HCL [Concomitant]
     Indication: PAIN
     Route: 048
  8. VICODIN [Concomitant]
     Indication: PAIN
     Route: 048

REACTIONS (4)
  - COMA [None]
  - INTENTIONAL OVERDOSE [None]
  - MULTIPLE DRUG OVERDOSE [None]
  - SUICIDE ATTEMPT [None]
